FAERS Safety Report 9630619 (Version 1)
Quarter: 2013Q4

REPORT INFORMATION
  Report Type: Spontaneous
  Country: US (occurrence: None)
  Receive Date: 20131016
  Receipt Date: 20131016
  Transmission Date: 20140711
  Serious: Yes (Disabling)
  Sender: FDA-Public Use
  Company Number: None

PATIENT
  Age: 46 Year
  Sex: Male
  Weight: 90.72 kg

DRUGS (1)
  1. DEPAKOTE E.R. [Suspect]
     Indication: CONVULSION
     Dosage: 2000MG, 4 PILLS
     Route: 048

REACTIONS (3)
  - Toxicity to various agents [None]
  - Poisoning [None]
  - Tooth disorder [None]
